FAERS Safety Report 14417392 (Version 3)
Quarter: 2018Q4

REPORT INFORMATION
  Report Type: Spontaneous
  Country: US (occurrence: US)
  Receive Date: 20180122
  Receipt Date: 20181225
  Transmission Date: 20190204
  Serious: Yes (Other)
  Sender: FDA-Public Use
  Company Number: US-ASTRAZENECA-2018SE06930

PATIENT
  Age: 62 Year
  Sex: Male
  Weight: 103.4 kg

DRUGS (33)
  1. ALLEGRA [Concomitant]
     Active Substance: FEXOFENADINE HYDROCHLORIDE
     Indication: SINUS DISORDER
     Dates: start: 2010
  2. SYMBICORT [Concomitant]
     Active Substance: BUDESONIDE\FORMOTEROL FUMARATE DIHYDRATE
  3. CIALIS [Concomitant]
     Active Substance: TADALAFIL
  4. NEXIUM [Suspect]
     Active Substance: ESOMEPRAZOLE MAGNESIUM
     Indication: GASTROOESOPHAGEAL REFLUX DISEASE
     Route: 048
     Dates: start: 2009, end: 2016
  5. ATORVASTATIN [Concomitant]
     Active Substance: ATORVASTATIN
     Indication: BLOOD CHOLESTEROL
     Dates: start: 2008
  6. CYCLOBENZAPRINE. [Concomitant]
     Active Substance: CYCLOBENZAPRINE
     Indication: MUSCLE SPASMS
     Dates: start: 2016
  7. PEPTO-BISMOL [Concomitant]
     Active Substance: BISMUTH SUBSALICYLATE
     Indication: ABDOMINAL DISCOMFORT
     Dates: start: 2015
  8. ASPIRIN. [Concomitant]
     Active Substance: ASPIRIN
     Indication: PAIN
     Dates: start: 2017
  9. AMOXICILLIN. [Concomitant]
     Active Substance: AMOXICILLIN
  10. LORAZEPAM. [Concomitant]
     Active Substance: LORAZEPAM
  11. FLUTICASONE. [Concomitant]
     Active Substance: FLUTICASONE
  12. BROMFED DM [Concomitant]
     Active Substance: BROMPHENIRAMINE MALEATE\DEXTROMETHORPHAN HYDROBROMIDE\PSEUDOEPHEDRINE HYDROCHLORIDE
  13. VITAMIN D [Concomitant]
     Active Substance: CHOLECALCIFEROL
  14. ONDANSETRON [Concomitant]
     Active Substance: ONDANSETRON
  15. NEXIUM [Suspect]
     Active Substance: ESOMEPRAZOLE MAGNESIUM
     Indication: GASTROOESOPHAGEAL REFLUX DISEASE
     Dosage: 40.0MG UNKNOWN
     Route: 048
     Dates: start: 2011, end: 2016
  16. NEXIUM [Suspect]
     Active Substance: ESOMEPRAZOLE MAGNESIUM
     Indication: GASTROOESOPHAGEAL REFLUX DISEASE
     Dosage: 40.0MG UNKNOWN
     Route: 048
     Dates: start: 20090723
  17. PANTOPRAZOLE [Suspect]
     Active Substance: PANTOPRAZOLE
     Indication: GASTROOESOPHAGEAL REFLUX DISEASE
     Dosage: 40.0MG UNKNOWN
     Route: 065
     Dates: start: 201606
  18. PANTOPRAZOLE [Suspect]
     Active Substance: PANTOPRAZOLE
     Indication: GASTROOESOPHAGEAL REFLUX DISEASE
     Dosage: 40.0MG UNKNOWN
     Route: 048
     Dates: start: 20150909
  19. CIPROFLOXACIN. [Concomitant]
     Active Substance: CIPROFLOXACIN
  20. BENZONATATE. [Concomitant]
     Active Substance: BENZONATATE
  21. DEXAMETHASONE. [Concomitant]
     Active Substance: DEXAMETHASONE
  22. VENTOLIN [Concomitant]
     Active Substance: ALBUTEROL SULFATE
  23. MONTELUKAST [Concomitant]
     Active Substance: MONTELUKAST SODIUM
     Indication: MULTIPLE ALLERGIES
     Dates: start: 2010, end: 2015
  24. RANITIDINE. [Concomitant]
     Active Substance: RANITIDINE
     Dates: start: 2016
  25. NAPROXEN. [Concomitant]
     Active Substance: NAPROXEN
  26. NASONEX [Concomitant]
     Active Substance: MOMETASONE FUROATE
  27. NYSTATIN. [Concomitant]
     Active Substance: NYSTATIN
  28. TRAMADOL. [Concomitant]
     Active Substance: TRAMADOL
  29. PROCHLORPERAZINE. [Concomitant]
     Active Substance: PROCHLORPERAZINE
     Indication: NAUSEA
     Dates: start: 2015, end: 2016
  30. METFORMIN [Concomitant]
     Active Substance: METFORMIN HYDROCHLORIDE
     Indication: DIABETES MELLITUS
     Dates: start: 2017
  31. CEFDINIR. [Concomitant]
     Active Substance: CEFDINIR
  32. FISH OIL [Concomitant]
     Active Substance: FISH OIL
  33. PREDNISONE. [Concomitant]
     Active Substance: PREDNISONE

REACTIONS (4)
  - Acute kidney injury [Not Recovered/Not Resolved]
  - Chronic kidney disease [Not Recovered/Not Resolved]
  - Renal failure [Not Recovered/Not Resolved]
  - Renal injury [Unknown]

NARRATIVE: CASE EVENT DATE: 20140321
